FAERS Safety Report 10252156 (Version 1)
Quarter: 2014Q2

REPORT INFORMATION
  Report Type: Spontaneous
  Country: GB (occurrence: None)
  Receive Date: 20140619
  Receipt Date: 20140619
  Transmission Date: 20141212
  Serious: Yes (Disabling)
  Sender: FDA-Public Use
  Company Number: AUR-APL-2014-06371

PATIENT
  Age: 32 Year
  Sex: Female
  Weight: 59.4 kg

DRUGS (1)
  1. SERTRALINE 50MG (SERTRALINE) UNKNOWN, 50MG [Suspect]
     Route: 048

REACTIONS (6)
  - Apathy [None]
  - Decreased interest [None]
  - Abnormal behaviour [None]
  - Aggression [None]
  - Therapy cessation [None]
  - Anxiety [None]
